FAERS Safety Report 6214028-2 (Version None)
Quarter: 2009Q2

REPORT INFORMATION
  Report Type: 
  Country: None (occurrence: None)
  Receive Date: 20090604
  Receipt Date: 20090527
  Transmission Date: 20091009
  Serious: Yes (Other)
  Sender: FDA-Public Use
  Company Number: US-AMGEN-QUU348860

PATIENT
  Age: 88 Year
  Sex: Female

DRUGS (7)
  1. ARANESP [Suspect]
     Indication: MYELODYSPLASTIC SYNDROME
     Dates: start: 20080101
  2. NEUPOGEN [Suspect]
     Indication: MYELODYSPLASTIC SYNDROME
  3. PREDNISONE [Concomitant]
  4. CENTRUM [Concomitant]
  5. LASIX [Concomitant]
  6. LIPITOR [Concomitant]
  7. IRON [Concomitant]

REACTIONS (3)
  - DRUG INEFFECTIVE [None]
  - OEDEMA PERIPHERAL [None]
  - SWELLING FACE [None]
